FAERS Safety Report 8544543-8 (Version None)
Quarter: 2012Q3

REPORT INFORMATION
  Report Type: 
  Country: None (occurrence: None)
  Receive Date: 20120727
  Receipt Date: 20120723
  Transmission Date: 20120928
  Serious: Yes (Hospitalization)
  Sender: FDA-Public Use
  Company Number: FR-GILEAD-2012-0058419

PATIENT
  Sex: Female

DRUGS (5)
  1. KALETRA [Concomitant]
     Indication: HIV INFECTION
     Dosage: UNK
     Dates: start: 20060101, end: 20120121
  2. VIREAD [Concomitant]
     Indication: HIV INFECTION
     Dosage: UNK
     Dates: start: 20060101, end: 20120121
  3. VIRAMUNE [Suspect]
     Dosage: UNK
     Route: 048
     Dates: start: 20120121, end: 20120204
  4. TRUVADA [Suspect]
     Indication: HIV INFECTION
     Dosage: 1 DF, QD
     Route: 048
     Dates: start: 20120121, end: 20120213
  5. VIRAMUNE [Suspect]
     Indication: HIV INFECTION
     Dosage: 2 DF, QD
     Route: 048
     Dates: start: 20120205, end: 20120213

REACTIONS (1)
  - STEVENS-JOHNSON SYNDROME [None]
